FAERS Safety Report 21356670 (Version 1)
Quarter: 2022Q3

REPORT INFORMATION
  Report Type: Report from Study
  Country: US (occurrence: US)
  Receive Date: 20220920
  Receipt Date: 20220920
  Transmission Date: 20221027
  Serious: Yes (Other)
  Sender: FDA-Public Use
  Company Number: US-SEATTLE GENETICS-2022SGN08653

PATIENT
  Age: 56 Year
  Sex: Female
  Weight: 84 kg

DRUGS (5)
  1. TUCATINIB [Suspect]
     Active Substance: TUCATINIB
     Indication: Invasive breast carcinoma
     Dosage: UNK
     Dates: start: 20220331
  2. TUCATINIB [Suspect]
     Active Substance: TUCATINIB
     Indication: Invasive breast carcinoma
     Dosage: UNK
     Dates: start: 20220331
  3. TUCATINIB [Suspect]
     Active Substance: TUCATINIB
     Dosage: 250 MG
     Dates: end: 20220828
  4. TUCATINIB [Suspect]
     Active Substance: TUCATINIB
     Dosage: 250 MG
     Dates: end: 20220828
  5. ADO-TRASTUZUMAB EMTANSINE [Suspect]
     Active Substance: ADO-TRASTUZUMAB EMTANSINE
     Indication: Invasive breast carcinoma
     Dosage: 176 MG INFUSION
     Dates: start: 20220331, end: 20220811

REACTIONS (1)
  - Hypokalaemia [Recovering/Resolving]

NARRATIVE: CASE EVENT DATE: 20220901
